FAERS Safety Report 12777125 (Version 1)
Quarter: 2016Q3

REPORT INFORMATION
  Report Type: Report from Study
  Country: DE (occurrence: DE)
  Receive Date: 20160924
  Receipt Date: 20160924
  Transmission Date: 20161109
  Serious: Yes (Hospitalization)
  Sender: FDA-Public Use
  Company Number: US-ASTRAZENECA-2016SF01931

PATIENT
  Age: 273 Day
  Sex: Male

DRUGS (8)
  1. SYNAGIS [Suspect]
     Active Substance: PALIVIZUMAB
     Indication: ANTIVIRAL PROPHYLAXIS
     Dosage: 120.0MG UNKNOWN
     Route: 030
     Dates: start: 20100420, end: 20100420
  2. SYNAGIS [Suspect]
     Active Substance: PALIVIZUMAB
     Indication: ANTIVIRAL PROPHYLAXIS
     Dosage: 115.0MG UNKNOWN
     Route: 030
     Dates: start: 20100323, end: 20100323
  3. SYNAGIS [Suspect]
     Active Substance: PALIVIZUMAB
     Indication: ANTIVIRAL PROPHYLAXIS
     Dosage: 90.0MG UNKNOWN
     Route: 030
     Dates: start: 20091201, end: 20091201
  4. SYNAGIS [Suspect]
     Active Substance: PALIVIZUMAB
     Indication: ANTIVIRAL PROPHYLAXIS
     Dosage: 68.0MG UNKNOWN
     Route: 030
     Dates: start: 20091006, end: 20091006
  5. SYNAGIS [Suspect]
     Active Substance: PALIVIZUMAB
     Indication: ANTIVIRAL PROPHYLAXIS
     Dosage: 60.0MG UNKNOWN
     Route: 030
     Dates: start: 20090908, end: 20090908
  6. SYNAGIS [Suspect]
     Active Substance: PALIVIZUMAB
     Indication: ANTIVIRAL PROPHYLAXIS
     Dosage: 105.0MG UNKNOWN
     Route: 030
     Dates: start: 20100125, end: 20100125
  7. SYNAGIS [Suspect]
     Active Substance: PALIVIZUMAB
     Indication: ANTIVIRAL PROPHYLAXIS
     Dosage: 75.0MG UNKNOWN
     Route: 030
     Dates: start: 20091103, end: 20091103
  8. SYNAGIS [Suspect]
     Active Substance: PALIVIZUMAB
     Indication: ANTIVIRAL PROPHYLAXIS
     Dosage: 95.0MG UNKNOWN
     Route: 030
     Dates: start: 20091230, end: 20091230

REACTIONS (2)
  - Respiratory syncytial virus test positive [Unknown]
  - Bronchitis [Unknown]

NARRATIVE: CASE EVENT DATE: 201002
